FAERS Safety Report 8614446-9 (Version None)
Quarter: 2012Q3

REPORT INFORMATION
  Report Type: 
  Country: None (occurrence: None)
  Receive Date: 20120823
  Receipt Date: 20120817
  Transmission Date: 20120928
  Serious: Yes (Other)
  Sender: FDA-Public Use
  Company Number: PHHY2012AR071913

PATIENT
  Sex: Female

DRUGS (1)
  1. ESTRATEST [Suspect]
     Indication: MENOPAUSE
     Dosage: 1 DF, (EVERY FOUR DAYS, ONE PATCH WEEKLY)
     Route: 062
     Dates: end: 20120501

REACTIONS (7)
  - MOOD SWINGS [None]
  - MENOPAUSAL SYMPTOMS [None]
  - HOT FLUSH [None]
  - INSOMNIA [None]
  - DEHYDRATION [None]
  - BLOOD PRESSURE DECREASED [None]
  - DEPRESSION [None]
